FAERS Safety Report 7416864-3 (Version None)
Quarter: 2011Q2

REPORT INFORMATION
  Report Type: 
  Country: None (occurrence: None)
  Receive Date: 20110406
  Receipt Date: 20110322
  Transmission Date: 20111010
  Serious: Yes (Hospitalization)
  Sender: FDA-Public Use
  Company Number: 2011MA002735

PATIENT
  Age: 27 Year
  Sex: Male

DRUGS (1)
  1. SULFATRIM AND SULFATRIM PEDIATRIC SUSPENSION (SULFAMETHOXAZOLE/ TRIMET [Suspect]
     Dosage: ;TID;PO
     Route: 048

REACTIONS (8)
  - PERIORBITAL HAEMATOMA [None]
  - PALLOR [None]
  - THROMBOCYTOPENIC PURPURA [None]
  - CONJUNCTIVAL HAEMORRHAGE [None]
  - LEUKOCYTOSIS [None]
  - SKIN HAEMORRHAGE [None]
  - MYELOBLAST PERCENTAGE DECREASED [None]
  - MYELOCYTE PERCENTAGE INCREASED [None]
